FAERS Safety Report 17517665 (Version 1)
Quarter: 2020Q1

REPORT INFORMATION
  Report Type: Spontaneous
  Country: US (occurrence: US)
  Receive Date: 20200309
  Receipt Date: 20200309
  Transmission Date: 20200409
  Serious: No
  Sender: FDA-Public Use
  Company Number: None

PATIENT
  Age: 58 Year
  Sex: Female
  Weight: 56.25 kg

DRUGS (7)
  1. FINASTERIDE. [Concomitant]
     Active Substance: FINASTERIDE
  2. PRAVACHOL [Concomitant]
     Active Substance: PRAVASTATIN SODIUM
  3. HAIR SKIN NAIL VITAMIN [Concomitant]
  4. CALCIUM [Concomitant]
     Active Substance: CALCIUM
  5. UBIQUINOL [Concomitant]
     Active Substance: UBIQUINOL
  6. ZETIA [Concomitant]
     Active Substance: EZETIMIBE
  7. OMEGA-3-ACID ETHYL ESTERS CAPSULES USP [Suspect]
     Active Substance: OMEGA-3-ACID ETHYL ESTERS
     Indication: BLOOD TRIGLYCERIDES INCREASED
     Dosage: ?          QUANTITY:2 CAPSULE(S);?
     Route: 048

REACTIONS (6)
  - Arthralgia [None]
  - Abdominal discomfort [None]
  - Product quality issue [None]
  - Drug ineffective [None]
  - Drug intolerance [None]
  - Eructation [None]

NARRATIVE: CASE EVENT DATE: 20200301
